FAERS Safety Report 5611621-2 (Version None)
Quarter: 2008Q1

REPORT INFORMATION
  Report Type: 
  Country: None (occurrence: None)
  Receive Date: 20080201
  Receipt Date: 20080122
  Transmission Date: 20080703
  Serious: Yes (Other)
  Sender: FDA-Public Use
  Company Number: ES-PFIZER INC-2008008312

PATIENT
  Sex: Female

DRUGS (1)
  1. CHANTIX [Suspect]
     Indication: SMOKING CESSATION THERAPY
     Route: 048

REACTIONS (7)
  - ABNORMAL BEHAVIOUR [None]
  - DEPRESSION [None]
  - DEREALISATION [None]
  - EYE PAIN [None]
  - INSOMNIA [None]
  - NIGHTMARE [None]
  - SUICIDAL IDEATION [None]
